FAERS Safety Report 16258787 (Version 1)
Quarter: 2019Q2

REPORT INFORMATION
  Report Type: Spontaneous
  Country: US (occurrence: US)
  Receive Date: 20190501
  Receipt Date: 20190501
  Transmission Date: 20190711
  Serious: Yes (Hospitalization, Other)
  Sender: FDA-Public Use
  Company Number: US-AMGEN INC.-USASP2019067817

PATIENT
  Age: 58 Year
  Sex: Female

DRUGS (1)
  1. AIMOVIG [Suspect]
     Active Substance: ERENUMAB-AOOE
     Indication: MIGRAINE
     Dosage: 140 MILLIGRAM, UNK
     Route: 065

REACTIONS (4)
  - Incorrect dose administered [Unknown]
  - Hospitalisation [Recovered/Resolved]
  - Wrong technique in product usage process [Unknown]
  - Confusional state [Unknown]

NARRATIVE: CASE EVENT DATE: 2019
